FAERS Safety Report 15249919 (Version 1)
Quarter: 2018Q3

REPORT INFORMATION
  Report Type: Spontaneous
  Country: TW (occurrence: TW)
  Receive Date: 20180807
  Receipt Date: 20180807
  Transmission Date: 20181010
  Serious: Yes (Other)
  Sender: FDA-Public Use
  Company Number: TW-009507513-1808TWN001232

PATIENT
  Age: 42 Year
  Sex: Male

DRUGS (1)
  1. PEMBROLIZUMAB. [Suspect]
     Active Substance: PEMBROLIZUMAB
     Indication: HEPATOCELLULAR CARCINOMA
     Dosage: 100 MG, EVERY THREE WEEKS

REACTIONS (3)
  - Off label use [Unknown]
  - Adrenal insufficiency [Recovering/Resolving]
  - Sinus node dysfunction [Recovering/Resolving]
